FAERS Safety Report 14065647 (Version 1)
Quarter: 2017Q4

REPORT INFORMATION
  Report Type: Report from Study
  Country: US (occurrence: US)
  Receive Date: 20171009
  Receipt Date: 20171009
  Transmission Date: 20180321
  Serious: Yes (Hospitalization)
  Sender: FDA-Public Use
  Company Number: US-AMGEN-USASL2017150144

PATIENT
  Age: 30 Year
  Sex: Male

DRUGS (2)
  1. PEPCID [Concomitant]
     Active Substance: FAMOTIDINE
  2. ENBREL [Suspect]
     Active Substance: ETANERCEPT
     Indication: PSORIATIC ARTHROPATHY
     Dosage: 50 MG, QWK
     Route: 065
     Dates: start: 20170905

REACTIONS (4)
  - Blister [Recovered/Resolved]
  - Neuralgia [Unknown]
  - Pyrexia [Recovered/Resolved]
  - Rash generalised [Unknown]

NARRATIVE: CASE EVENT DATE: 201709
